FAERS Safety Report 8616375-3 (Version None)
Quarter: 2012Q3

REPORT INFORMATION
  Report Type: 
  Country: None (occurrence: None)
  Receive Date: 20120823
  Receipt Date: 20120801
  Transmission Date: 20120928
  Serious: No
  Sender: FDA-Public Use
  Company Number: US-009507513-1208USA001622

PATIENT

DRUGS (5)
  1. PEG-INTRON [Suspect]
     Indication: HEPATITIS C
     Dosage: UNK
     Dates: start: 20120510
  2. RIBASPHERE [Suspect]
     Indication: HEPATITIS C
  3. OMEPRAZOLE [Concomitant]
  4. LOSARTAN POTASSIUM [Concomitant]
  5. ASCORBIC ACID [Concomitant]

REACTIONS (6)
  - ABDOMINAL PAIN UPPER [None]
  - FATIGUE [None]
  - RASH GENERALISED [None]
  - DIZZINESS [None]
  - DYSPNOEA [None]
  - WEIGHT DECREASED [None]
